FAERS Safety Report 6982455-1 (Version None)
Quarter: 2010Q3

REPORT INFORMATION
  Report Type: 
  Country: None (occurrence: None)
  Receive Date: 20100914
  Receipt Date: 20100129
  Transmission Date: 20110219
  Serious: No
  Sender: FDA-Public Use
  Company Number: US-PFIZER INC-2010012688

PATIENT
  Sex: Female
  Weight: 48.5 kg

DRUGS (8)
  1. LYRICA [Suspect]
     Indication: NEUROPATHY PERIPHERAL
     Dosage: 50 MG, UNK
  2. LYRICA [Suspect]
     Dosage: 100 MG, 3X/DAY
  3. INDERAL [Concomitant]
     Indication: HYPERTENSION
     Dosage: 40 MG 5 TIMES A DAY
  4. THYROID [Concomitant]
     Indication: HYPOTHYROIDISM
     Dosage: UNK
  5. ATARAX [Concomitant]
     Indication: DERMATITIS CONTACT
     Dosage: UNK
  6. LEXAPRO [Concomitant]
     Indication: DEPRESSION
     Dosage: 20 MG, 1X/DAY
  7. PRAVACHOL [Concomitant]
     Dosage: UNK
  8. VERAPAMIL [Concomitant]
     Dosage: UNK

REACTIONS (4)
  - FALL [None]
  - FATIGUE [None]
  - GAIT DISTURBANCE [None]
  - RASH [None]
